FAERS Safety Report 8421737-3 (Version None)
Quarter: 2012Q2

REPORT INFORMATION
  Report Type: 
  Country: None (occurrence: None)
  Receive Date: 20120608
  Receipt Date: 20120525
  Transmission Date: 20120825
  Serious: Yes (Hospitalization)
  Sender: FDA-Public Use
  Company Number: FR-CELGENEUS-056-50794-12053218

PATIENT
  Sex: Male
  Weight: 80 kg

DRUGS (4)
  1. NEXIUM [Concomitant]
     Dosage: 40 MILLIGRAM
     Route: 048
     Dates: start: 20040101
  2. REVLIMID [Suspect]
     Dosage: 10 MILLIGRAM
     Route: 048
     Dates: start: 20120509, end: 20120522
  3. GAVISCON [Concomitant]
     Route: 048
  4. VIDAZA [Suspect]
     Route: 058
     Dates: start: 20120509, end: 20120515

REACTIONS (1)
  - FEBRILE BONE MARROW APLASIA [None]
